FAERS Safety Report 19996558 (Version 1)
Quarter: 2021Q4

REPORT INFORMATION
  Report Type: Spontaneous
  Country: PT (occurrence: PT)
  Receive Date: 20211025
  Receipt Date: 20211025
  Transmission Date: 20220303
  Serious: Yes (Other)
  Sender: FDA-Public Use
  Company Number: PT-EXELTIS PHARMACEUTICAL HOLDING, S.L.-2110PT02377

PATIENT
  Age: 41 Year
  Sex: Female

DRUGS (1)
  1. DROSPIRENONE [Suspect]
     Active Substance: DROSPIRENONE
     Indication: Menstrual cycle management
     Dosage: UNK
     Route: 065
     Dates: start: 20201019

REACTIONS (2)
  - Deep vein thrombosis [Recovered/Resolved]
  - Off label use [Unknown]

NARRATIVE: CASE EVENT DATE: 20210901
